FAERS Safety Report 8959065 (Version 1)
Quarter: 2012Q4

REPORT INFORMATION
  Report Type: Spontaneous
  Country: HR (occurrence: None)
  Receive Date: 20121128
  Receipt Date: 20121128
  Transmission Date: 20130627
  Serious: Yes (Other)
  Sender: FDA-Public Use
  Company Number: FK201203407

PATIENT
  Age: 72 Year
  Sex: Female

DRUGS (2)
  1. ACYCLOVIR SODIUM [Suspect]
     Indication: HERPES  ZOSTER
     Dosage: 800  mg,  1 in 12 hr,  Oral
     Route: 048
  2. CORTICOSTEROIDS (CORTICOSTEROIDS) [Concomitant]

REACTIONS (8)
  - Syncope [None]
  - Vomiting [None]
  - Confusional state [None]
  - Mental disorder [None]
  - Amnesia [None]
  - Transient ischaemic attack [None]
  - Pleocytosis [None]
  - Brain oedema [None]
